FAERS Safety Report 8296440-3 (Version None)
Quarter: 2012Q2

REPORT INFORMATION
  Report Type: 
  Country: None (occurrence: None)
  Receive Date: 20120418
  Receipt Date: 20120413
  Transmission Date: 20120825
  Serious: Yes (Other)
  Sender: FDA-Public Use
  Company Number: DE-BAYER-2012-029027

PATIENT
  Age: 91 Year
  Sex: Female
  Weight: 70 kg

DRUGS (8)
  1. ASPIRIN [Interacting]
     Dosage: 600 MG, UNK
  2. HYDROCHLOROTHIAZIDE [Concomitant]
     Dosage: 1 DF, QD
  3. DIPYRONE TAB [Concomitant]
     Dosage: 30 GTT
  4. BISOPROLOL FUMARATE [Concomitant]
     Dosage: 1 DF, QD
  5. DIOVAN HCT [Concomitant]
     Dosage: 1 DF, QD
  6. TORSEMIDE [Concomitant]
     Dosage: 1 DF, QD
  7. VALORON [Concomitant]
     Dosage: 20 GTT, TID
  8. XARELTO [Suspect]
     Indication: ATRIAL FIBRILLATION
     Dosage: UNK
     Dates: start: 20120126, end: 20120312

REACTIONS (4)
  - MELAENA [None]
  - HAEMOGLOBIN DECREASED [None]
  - GASTROINTESTINAL HAEMORRHAGE [None]
  - CIRCULATORY COLLAPSE [None]
